FAERS Safety Report 8572386-8 (Version None)
Quarter: 2012Q3

REPORT INFORMATION
  Report Type: 
  Country: None (occurrence: None)
  Receive Date: 20120806
  Receipt Date: 20120731
  Transmission Date: 20120928
  Serious: Yes (Death, Hospitalization)
  Sender: FDA-Public Use
  Company Number: GB-ELI_LILLY_AND_COMPANY-GB201205005903

PATIENT
  Sex: Male
  Weight: 62.4 kg

DRUGS (11)
  1. FOLIC ACID [Concomitant]
     Indication: PREMEDICATION
     Dosage: 400 MG, QD
     Route: 048
     Dates: start: 20120306
  2. VITAMIN B-12 [Concomitant]
     Indication: PREMEDICATION
     Dosage: 1 MG, UNKNOWN
     Route: 030
     Dates: start: 20120307
  3. LANSOPRAZOLE [Concomitant]
     Indication: GASTROINTESTINAL DISORDER
     Dosage: 30 MG, QD
     Route: 048
     Dates: start: 20120227
  4. DEXAMETHASONE [Concomitant]
     Dosage: 2 MG, BID
     Route: 048
     Dates: start: 20120227
  5. SPIRIVA [Concomitant]
     Dosage: 18 UG, QD
     Route: 055
  6. ENOXAPARIN [Concomitant]
     Indication: EMBOLISM
     Dosage: 120 MG, QD
     Route: 058
  7. TAXOL [Suspect]
     Indication: NON-SMALL CELL LUNG CANCER
     Dosage: 175 MG/M2, UNK
     Route: 042
     Dates: start: 20120305, end: 20120423
  8. SERETIDE [Concomitant]
     Dosage: 1 DF, BID
     Route: 055
  9. PEMETREXED [Suspect]
     Indication: NON-SMALL CELL LUNG CANCER
     Dosage: 500 MG/M2, UNK
     Route: 042
     Dates: start: 20120305, end: 20120423
  10. PHYLLOCONTIN [Concomitant]
     Dosage: 225 MG, BID
     Route: 048
  11. FLUCONAZOLE [Concomitant]
     Indication: ORAL CANDIDIASIS
     Dosage: UNK, TID
     Route: 048
     Dates: start: 20120427, end: 20120430

REACTIONS (11)
  - HYPOALBUMINAEMIA [None]
  - FLUID INTAKE REDUCED [None]
  - ANAEMIA [None]
  - HYPONATRAEMIA [None]
  - LETHARGY [None]
  - PLATELET COUNT DECREASED [None]
  - NEUTROPENIA [None]
  - WHITE BLOOD CELL COUNT DECREASED [None]
  - BRONCHOPNEUMONIA [None]
  - DECREASED APPETITE [None]
  - NAUSEA [None]
